FAERS Safety Report 12600181 (Version 1)
Quarter: 2016Q3

REPORT INFORMATION
  Report Type: Report from Study
  Country: DE (occurrence: DE)
  Receive Date: 20160727
  Receipt Date: 20160727
  Transmission Date: 20161109
  Serious: Yes (Hospitalization)
  Sender: FDA-Public Use
  Company Number: PHHO2010DE022407

PATIENT
  Age: 52 Year
  Sex: Female
  Weight: 85 kg

DRUGS (5)
  1. PAZOPANIB [Suspect]
     Active Substance: PAZOPANIB
     Indication: FALLOPIAN TUBE CANCER
  2. PAZOPANIB [Suspect]
     Active Substance: PAZOPANIB
     Indication: MALIGNANT PERITONEAL NEOPLASM
  3. ORFIRIL [Concomitant]
     Active Substance: VALPROIC ACID
     Indication: PRODUCT USED FOR UNKNOWN INDICATION
     Route: 065
  4. PAZOPANIB [Suspect]
     Active Substance: PAZOPANIB
     Indication: OVARIAN CANCER
     Dosage: 800 MG, QD
     Route: 048
     Dates: start: 20100208, end: 20100215
  5. LAMICTAL [Concomitant]
     Active Substance: LAMOTRIGINE
     Indication: PRODUCT USED FOR UNKNOWN INDICATION
     Route: 065

REACTIONS (1)
  - Female genital tract fistula [Recovered/Resolved]

NARRATIVE: CASE EVENT DATE: 20100215
